FAERS Safety Report 17191838 (Version 2)
Quarter: 2021Q1

REPORT INFORMATION
  Report Type: Spontaneous
  Country: CA (occurrence: CA)
  Receive Date: 20191223
  Receipt Date: 20210107
  Transmission Date: 20210419
  Serious: Yes (Other)
  Sender: FDA-Public Use
  Company Number: CA-PFIZER INC-2019027089

PATIENT
  Age: 50 Year
  Sex: Female

DRUGS (2)
  1. XELJANZ [Suspect]
     Active Substance: TOFACITINIB CITRATE
     Dosage: 5 MG, 2X/DAY
     Route: 048
     Dates: start: 201901, end: 202001
  2. XELJANZ [Suspect]
     Active Substance: TOFACITINIB CITRATE
     Indication: RHEUMATOID ARTHRITIS
     Dosage: 5 MG, 2X/DAY
     Route: 048
     Dates: start: 20181209

REACTIONS (10)
  - Injury [Unknown]
  - Stress fracture [Unknown]
  - Blood cholesterol increased [Unknown]
  - Sensitivity to weather change [Unknown]
  - Condition aggravated [Unknown]
  - Thrombosis [Unknown]
  - Alopecia [Unknown]
  - Pruritus [Unknown]
  - Pain in extremity [Unknown]
  - Weight increased [Unknown]

NARRATIVE: CASE EVENT DATE: 2019
